FAERS Safety Report 17286543 (Version 1)
Quarter: 2020Q1

REPORT INFORMATION
  Report Type: Spontaneous
  Country: US (occurrence: US)
  Receive Date: 20200119
  Receipt Date: 20200119
  Transmission Date: 20200409
  Serious: Yes (Other)
  Sender: FDA-Public Use
  Company Number: NVSC2020US009513

PATIENT
  Age: 9 Year
  Sex: Female
  Weight: 34 kg

DRUGS (6)
  1. CLOFAZIMINE [Suspect]
     Active Substance: CLOFAZIMINE
     Indication: EXTRAPULMONARY TUBERCULOSIS
     Dosage: 100 MG
     Route: 065
     Dates: end: 20191202
  2. LINEZOLID. [Suspect]
     Active Substance: LINEZOLID
     Indication: EXTRAPULMONARY TUBERCULOSIS
     Dosage: 600 MG
     Route: 065
     Dates: end: 20191202
  3. CLOFAZIMINE [Suspect]
     Active Substance: CLOFAZIMINE
     Dosage: 100 MG
     Route: 065
     Dates: end: 20191213
  4. CYCLOSERINE. [Suspect]
     Active Substance: CYCLOSERINE
     Indication: EXTRAPULMONARY TUBERCULOSIS
     Dosage: 500 MG
     Route: 065
     Dates: end: 20191202
  5. LFX [Suspect]
     Active Substance: LEVOFLOXACIN
     Indication: EXTRAPULMONARY TUBERCULOSIS
     Dosage: 750 MG
     Route: 065
     Dates: end: 20191202
  6. DELTYBA [Suspect]
     Active Substance: DELAMANID
     Indication: EXTRAPULMONARY TUBERCULOSIS
     Dosage: 50 MG, BID
     Route: 065
     Dates: start: 20190528, end: 20191202

REACTIONS (11)
  - Electrocardiogram abnormal [Recovered/Resolved]
  - Rash [Unknown]
  - Nausea [Unknown]
  - Tuberculosis [Unknown]
  - Incorrect product administration duration [Unknown]
  - Angina pectoris [Recovered/Resolved]
  - Underdose [Unknown]
  - Cardiac disorder [Unknown]
  - Dermatitis allergic [Recovered/Resolved]
  - Product use in unapproved indication [Unknown]
  - Product use issue [Unknown]

NARRATIVE: CASE EVENT DATE: 20190528
